FAERS Safety Report 12712193 (Version 1)
Quarter: 2016Q3

REPORT INFORMATION
  Report Type: Report from Study
  Country: CA (occurrence: CA)
  Receive Date: 20160902
  Receipt Date: 20160902
  Transmission Date: 20161109
  Serious: Yes (Other)
  Sender: FDA-Public Use
  Company Number: CA-AMGEN-CANSL2016112931

PATIENT
  Sex: Female

DRUGS (1)
  1. ENBREL [Suspect]
     Active Substance: ETANERCEPT
     Indication: PSORIASIS
     Dosage: 50 MG, UNK
     Route: 065
     Dates: start: 20100206

REACTIONS (7)
  - Surgery [Unknown]
  - Walking aid user [Unknown]
  - Basal cell carcinoma [Unknown]
  - Drug dose omission [Unknown]
  - Pain [Unknown]
  - Injury [Unknown]
  - Arthritis [Unknown]
